FAERS Safety Report 9145849 (Version 2)
Quarter: 2013Q2

REPORT INFORMATION
  Report Type: Spontaneous
  Country: US (occurrence: US)
  Receive Date: 20130307
  Receipt Date: 20130425
  Transmission Date: 20140414
  Serious: No
  Sender: FDA-Public Use
  Company Number: US-009507513-1303USA000977

PATIENT
  Sex: Male

DRUGS (3)
  1. VICTRELIS [Suspect]
     Indication: HEPATITIS C
     Dosage: 200 MG, 4 CAPSULES 3 TIMES DAILY
     Route: 048
     Dates: start: 20130304
  2. RIBASPHERE [Suspect]
     Indication: HEPATITIS C
  3. PEGASYS [Suspect]
     Indication: HEPATITIS C

REACTIONS (3)
  - Laboratory test abnormal [Unknown]
  - Fatigue [Unknown]
  - Diarrhoea [Unknown]
